FAERS Safety Report 5567396-9 (Version None)
Quarter: 2007Q4

REPORT INFORMATION
  Report Type: 
  Country: None (occurrence: None)
  Receive Date: 20071214
  Receipt Date: 20071203
  Transmission Date: 20080405
  Serious: Yes (Hospitalization)
  Sender: FDA-Public Use
  Company Number: 02100-EUR-07-0168

PATIENT
  Age: 60 Year
  Sex: Female

DRUGS (2)
  1. CILOSTAZOL [Suspect]
     Indication: INTERMITTENT CLAUDICATION
     Dosage: 50 MG/100 MG/200 MG ORAL
     Route: 048
     Dates: start: 20070531
  2. ACETYLSALICYLIC ACID SRT [Concomitant]

REACTIONS (3)
  - FEMORAL ARTERY OCCLUSION [None]
  - ILIAC ARTERY OCCLUSION [None]
  - REOCCLUSION [None]
